FAERS Safety Report 21247307 (Version 4)
Quarter: 2022Q4

REPORT INFORMATION
  Report Type: Spontaneous
  Country: US (occurrence: US)
  Receive Date: 20220824
  Receipt Date: 20221219
  Transmission Date: 20230112
  Serious: No
  Sender: FDA-Public Use
  Company Number: US-PFIZER INC-PV202200048568

PATIENT
  Age: 91 Year
  Sex: Female

DRUGS (4)
  1. XELJANZ [Suspect]
     Active Substance: TOFACITINIB CITRATE
     Indication: Rheumatoid arthritis
     Dosage: 5 MG (ONCE EVERY OTHER DAY, 4 DAYS A WEEK ON SUNDAY, TUESDAY, THURSDAY AND SATURDAY)
     Route: 048
     Dates: start: 2017
  2. PREDNISONE [Concomitant]
     Active Substance: PREDNISONE
     Dosage: UNK
  3. TYLENOL [Concomitant]
     Active Substance: ACETAMINOPHEN
     Dosage: UNK UNK, AS NEEDED
  4. NORCO [Concomitant]
     Active Substance: ACETAMINOPHEN\HYDROCODONE BITARTRATE
     Dosage: UNK, AS NEEDED

REACTIONS (8)
  - Joint swelling [Unknown]
  - Bone pain [Unknown]
  - Urinary tract infection [Recovered/Resolved]
  - Pain [Recovered/Resolved]
  - Neoplasm recurrence [Unknown]
  - Infection [Unknown]
  - Off label use [Unknown]
  - Product dose omission issue [Unknown]

NARRATIVE: CASE EVENT DATE: 20220901
